FAERS Safety Report 19110479 (Version 1)
Quarter: 2021Q2

REPORT INFORMATION
  Report Type: Spontaneous
  Country: US (occurrence: US)
  Receive Date: 20210409
  Receipt Date: 20210409
  Transmission Date: 20210717
  Serious: No
  Sender: FDA-Public Use
  Company Number: US-ORGANON-O2104USA000339

PATIENT
  Sex: Female

DRUGS (3)
  1. NIFEDIPINE. [Suspect]
     Active Substance: NIFEDIPINE
  2. COZAAR [Suspect]
     Active Substance: LOSARTAN POTASSIUM
     Dosage: UNK
     Route: 048
  3. METOPROLOL. [Suspect]
     Active Substance: METOPROLOL

REACTIONS (9)
  - Diarrhoea [Recovering/Resolving]
  - Renal pain [Recovering/Resolving]
  - Quality of life decreased [Recovering/Resolving]
  - Suffocation feeling [Recovering/Resolving]
  - Muscular weakness [Recovering/Resolving]
  - Eye disorder [Unknown]
  - Adverse event [Recovering/Resolving]
  - Peripheral swelling [Recovering/Resolving]
  - Dyspnoea [Recovering/Resolving]
